FAERS Safety Report 8039348-0 (Version None)
Quarter: 2012Q1

REPORT INFORMATION
  Report Type: 
  Country: None (occurrence: None)
  Receive Date: 20120111
  Receipt Date: 20111212
  Transmission Date: 20120608
  Serious: Yes (Other)
  Sender: FDA-Public Use
  Company Number: US-AMGEN-USASP2011066849

PATIENT
  Age: 42 Year
  Sex: Male

DRUGS (2)
  1. ENBREL [Suspect]
     Indication: PSORIATIC ARTHROPATHY
     Dosage: UNKNOWN DOSAGE FOR FOUR YEARS
  2. ADALIMUMAB [Suspect]
     Indication: PSORIATIC ARTHROPATHY
     Dosage: UNKNOWN DOSAGE FOR FOUR MONTHS

REACTIONS (1)
  - OPTIC NEURITIS [None]
